FAERS Safety Report 18769846 (Version 2)
Quarter: 2021Q1

REPORT INFORMATION
  Report Type: Spontaneous
  Country: GR (occurrence: GR)
  Receive Date: 20210121
  Receipt Date: 20210205
  Transmission Date: 20210419
  Serious: Yes (Life-Threatening)
  Sender: FDA-Public Use
  Company Number: GR-NALPROPION PHARMACEUTICALS INC.-2021-012107

PATIENT

DRUGS (5)
  1. SALOSPIR [Concomitant]
     Active Substance: ASPIRIN
     Indication: PRODUCT USED FOR UNKNOWN INDICATION
     Dosage: 100 MG, 1 DAILY
  2. MYSIMBA (NALTREXONE HCL/BUPROPION HCL) PROLONGED?RELEASE TABLETS [Suspect]
     Active Substance: BUPROPION HYDROCHLORIDE\NALTREXONE HYDROCHLORIDE
     Dosage: TWO DOSAGE FORMS, TWICE DAILY
     Route: 048
     Dates: start: 2019, end: 20201023
  3. LEPUR [Concomitant]
     Active Substance: SIMVASTATIN
     Indication: PRODUCT USED FOR UNKNOWN INDICATION
     Dosage: 20 MG, 1 DAILY
  4. MYSIMBA (NALTREXONE HCL/BUPROPION HCL) PROLONGED?RELEASE TABLETS [Suspect]
     Active Substance: BUPROPION HYDROCHLORIDE\NALTREXONE HYDROCHLORIDE
     Indication: OBESITY
     Dosage: UNKNOWN DOSE AND FREQUENCY
     Route: 048
     Dates: start: 20190515, end: 2019
  5. CONCOR [Concomitant]
     Active Substance: BISOPROLOL FUMARATE
     Indication: PRODUCT USED FOR UNKNOWN INDICATION
     Dosage: 2.5 MG, BID

REACTIONS (1)
  - Epilepsy [Recovered/Resolved]

NARRATIVE: CASE EVENT DATE: 20201023
